FAERS Safety Report 10599144 (Version 2)
Quarter: 2014Q4

REPORT INFORMATION
  Report Type: Report from Study
  Country: FR (occurrence: FR)
  Receive Date: 20141121
  Receipt Date: 20141121
  Transmission Date: 20150529
  Serious: Yes (Hospitalization, Other)
  Sender: FDA-Public Use
  Company Number: FR-BAYER-2013-056505

PATIENT
  Age: 73 Year
  Sex: Female

DRUGS (1)
  1. REGORAFENIB [Suspect]
     Active Substance: REGORAFENIB
     Indication: COLORECTAL CANCER METASTATIC
     Dosage: 160 MG, UNK
     Dates: start: 20130408

REACTIONS (8)
  - Pancreatitis [Recovering/Resolving]
  - Diarrhoea [Recovered/Resolved]
  - Haematuria [Unknown]
  - Hypophosphataemia [Recovered/Resolved]
  - Hypoalbuminaemia [Recovered/Resolved]
  - Abdominal pain [Recovered/Resolved]
  - Urinary fistula [Recovering/Resolving]
  - Asthenia [Recovered/Resolved]

NARRATIVE: CASE EVENT DATE: 2013
